FAERS Safety Report 10479722 (Version 1)
Quarter: 2014Q3

REPORT INFORMATION
  Report Type: Report from Study
  Country: US (occurrence: US)
  Receive Date: 20140927
  Receipt Date: 20140927
  Transmission Date: 20150326
  Serious: Yes (Other)
  Sender: FDA-Public Use
  Company Number: US-ALEXION PHARMACEUTICALS INC.-A200901537

PATIENT
  Sex: Male

DRUGS (1)
  1. SOLIRIS [Suspect]
     Active Substance: ECULIZUMAB
     Indication: PAROXYSMAL NOCTURNAL HAEMOGLOBINURIA
     Dosage: UNK
     Route: 042

REACTIONS (11)
  - Haemoglobinuria [Unknown]
  - Jaundice [Unknown]
  - Dyspnoea [Unknown]
  - Haemolysis [Not Recovered/Not Resolved]
  - Biopsy bone marrow [Unknown]
  - Abdominal pain [Unknown]
  - Quality of life decreased [Unknown]
  - Fatigue [Unknown]
  - Biopsy liver [Unknown]
  - Central venous catheterisation [Unknown]
  - Blood lactate dehydrogenase increased [Unknown]
